FAERS Safety Report 23346163 (Version 1)
Quarter: 2023Q4

REPORT INFORMATION
  Report Type: Spontaneous
  Country: TH (occurrence: TH)
  Receive Date: 20231228
  Receipt Date: 20231228
  Transmission Date: 20240109
  Serious: Yes (Other)
  Sender: FDA-Public Use
  Company Number: TH-002147023-NVSC2023TH268436

PATIENT
  Age: 62 Year
  Sex: Male

DRUGS (2)
  1. DABRAFENIB [Suspect]
     Active Substance: DABRAFENIB
     Indication: Malignant melanoma stage IV
     Dosage: 150 MG, BID
     Route: 065
     Dates: start: 20230704
  2. TRAMETINIB [Suspect]
     Active Substance: TRAMETINIB
     Indication: Malignant melanoma stage IV
     Dosage: 2 MG, QD
     Route: 065
     Dates: start: 20230704

REACTIONS (4)
  - Disease progression [Unknown]
  - Mass [Unknown]
  - Weight increased [Unknown]
  - Decreased appetite [Unknown]

NARRATIVE: CASE EVENT DATE: 20230725
